FAERS Safety Report 10685528 (Version 2)
Quarter: 2015Q1

REPORT INFORMATION
  Report Type: Spontaneous
  Country: US (occurrence: None)
  Receive Date: 20141229
  Receipt Date: 20150112
  Transmission Date: 20150720
  Serious: Yes (Disabling, Other)
  Sender: FDA-Public Use
  Company Number: HA14-451-AE (PT. # 1)

PATIENT
  Age: 66 Year
  Sex: Male

DRUGS (14)
  1. TESTIM [Suspect]
     Active Substance: TESTOSTERONE
  2. MICARDIS HCT [Concomitant]
     Active Substance: HYDROCHLOROTHIAZIDE\TELMISARTAN
  3. LEVOTHYROXINE [Concomitant]
     Active Substance: LEVOTHYROXINE
  4. VYTORIN [Concomitant]
     Active Substance: EZETIMIBE\SIMVASTATIN
  5. ASPIRIN. [Concomitant]
     Active Substance: ASPIRIN
  6. METOPROLOL TARTRATE. [Concomitant]
     Active Substance: METOPROLOL TARTRATE
  7. AMLODIPINE BESYLATE. [Suspect]
     Active Substance: AMLODIPINE BESYLATE
     Route: 048
     Dates: end: 20141212
  8. METFORMIN [Concomitant]
     Active Substance: METFORMIN HYDROCHLORIDE
  9. PROTONIX [Concomitant]
     Active Substance: PANTOPRAZOLE SODIUM
  10. KLOR-CON [Suspect]
     Active Substance: POTASSIUM CHLORIDE
  11. AMLODIPINE BESYLATE. [Concomitant]
     Active Substance: AMLODIPINE BESYLATE
  12. BENICAR HCT [Concomitant]
     Active Substance: HYDROCHLOROTHIAZIDE\OLMESARTAN MEDOXOMIL
  13. AMLODIPINE BESYLATE. [Concomitant]
     Active Substance: AMLODIPINE BESYLATE
  14. ANDROGEL [Concomitant]
     Active Substance: TESTOSTERONE

REACTIONS (12)
  - Sinus disorder [None]
  - Dyspnoea [None]
  - Hearing impaired [None]
  - Balance disorder [None]
  - Body mass index increased [None]
  - Anxiety [None]
  - Vertigo [None]
  - Deafness [None]
  - Epistaxis [None]
  - Tinnitus [None]
  - Pyogenic granuloma [None]
  - Drug interaction [None]
